FAERS Safety Report 11281135 (Version 1)
Quarter: 2015Q3

REPORT INFORMATION
  Report Type: Report from Study
  Country: FR (occurrence: FR)
  Receive Date: 20150717
  Receipt Date: 20150717
  Transmission Date: 20151125
  Serious: Yes (Hospitalization)
  Sender: FDA-Public Use
  Company Number: FR-GLAXOSMITHKLINE-FR2015GSK102492

PATIENT
  Age: 6 Decade
  Sex: Female

DRUGS (6)
  1. SELOKEN [Concomitant]
     Active Substance: METOPROLOL
  2. OMEGA-3-ACID ETHYL ESTERS. [Suspect]
     Active Substance: OMEGA-3-ACID ETHYL ESTERS
     Indication: ISCHAEMIC HEART DISEASE PROPHYLAXIS
     Dosage: UNK
     Dates: start: 20080305, end: 20130909
  3. PLAVIX [Concomitant]
     Active Substance: CLOPIDOGREL BISULFATE
  4. KARDEGIC [Concomitant]
     Active Substance: ASPIRIN LYSINE
  5. TAHOR [Concomitant]
     Active Substance: ATORVASTATIN CALCIUM
  6. ODRIK [Concomitant]
     Active Substance: TRANDOLAPRIL

REACTIONS (1)
  - Colonoscopy [Unknown]

NARRATIVE: CASE EVENT DATE: 201212
